FAERS Safety Report 21658014 (Version 4)
Quarter: 2023Q4

REPORT INFORMATION
  Report Type: Report from Study
  Country: DE (occurrence: DE)
  Receive Date: 20221129
  Receipt Date: 20231109
  Transmission Date: 20240110
  Serious: Yes (Hospitalization, Other)
  Sender: FDA-Public Use
  Company Number: DE-SAMSUNG BIOEPIS-SB-2022-29194

PATIENT
  Age: 66 Year
  Sex: Female

DRUGS (17)
  1. METHOTREXATE SODIUM [Suspect]
     Active Substance: METHOTREXATE SODIUM
     Dosage: 15 MG, WEEKLY
     Dates: end: 202208
  2. ETANERCEPT [Suspect]
     Active Substance: ETANERCEPT
     Indication: Rheumatoid arthritis
     Dosage: 50 MG, WEEKLY
     Dates: start: 202107, end: 202208
  3. CANDESARTAN [Concomitant]
     Active Substance: CANDESARTAN
     Dosage: 8 MG
  4. METAMIZOLE [Concomitant]
     Active Substance: METAMIZOLE
     Dosage: 500 MG
  5. TORSEMIDE [Concomitant]
     Active Substance: TORSEMIDE
     Dosage: 10 MG
  6. AMITRIPTYLINE [Concomitant]
     Active Substance: AMITRIPTYLINE
     Dosage: 50 MG
  7. SIMVASTATIN [Concomitant]
     Active Substance: SIMVASTATIN
     Dosage: 40 MG
  8. DIETARY SUPPLEMENT [Concomitant]
     Active Substance: DIETARY SUPPLEMENT
  9. LACTULOSE [Concomitant]
     Active Substance: LACTULOSE
     Dosage: 30 ML
  10. FOLIC ACID [Concomitant]
     Active Substance: FOLIC ACID
     Dosage: 5 MG
  11. PANTOPRAZOLE [Concomitant]
     Active Substance: PANTOPRAZOLE
     Dosage: 40 MG
  12. BECLOMETHASONE DIPROPIONATE [Concomitant]
     Active Substance: BECLOMETHASONE DIPROPIONATE
     Dosage: 87/5/9 MICROG
  13. CARBAMAZEPINE [Concomitant]
     Active Substance: CARBAMAZEPINE
     Dosage: 2 MG
  14. GABAPENTIN [Concomitant]
     Active Substance: GABAPENTIN
     Dosage: 400 MG
  15. MIRTAZAPINE [Concomitant]
     Active Substance: MIRTAZAPINE
     Dosage: 15 MG
  16. LAMOTRIGINE [Concomitant]
     Active Substance: LAMOTRIGINE
     Dosage: 100 MG
  17. CHOLECALCIFEROL [Concomitant]
     Active Substance: CHOLECALCIFEROL
     Dosage: 2000 IU

REACTIONS (5)
  - Idiopathic interstitial pneumonia [Recovered/Resolved]
  - Pancytopenia [Not Recovered/Not Resolved]
  - Myelosuppression [Not Recovered/Not Resolved]
  - Neoplasm [Unknown]
  - COVID-19 [Recovered/Resolved]

NARRATIVE: CASE EVENT DATE: 20220601
